FAERS Safety Report 8875339 (Version 1)
Quarter: 2012Q4

REPORT INFORMATION
  Report Type: 
  Country: US (occurrence: US)
  Receive Date: 20121026
  Receipt Date: 20121026
  Transmission Date: 20130627
  Serious: No
  Sender: FDA-Public Use
  Company Number: US-AMGEN-USASP2012044476

PATIENT
  Sex: Female

DRUGS (17)
  1. ENBREL [Suspect]
     Indication: PRODUCT USED FOR UNKNOWN INDICATION
     Dosage: 50 mg, qwk
     Route: 058
  2. METHOTREXATE [Concomitant]
     Dosage: 2.5 mg, UNK
  3. FISH OIL [Concomitant]
     Dosage: UNK
  4. CRANBERRY                          /01512301/ [Concomitant]
     Dosage: 1000 mg, UNK
  5. VITAMIN D /00107901/ [Concomitant]
     Dosage: 1000 unit, UNK
  6. SIMVASTATIN [Concomitant]
     Dosage: 20 mg, UNK
  7. FOLIC ACID [Concomitant]
     Dosage: 1 mg, UNK
  8. SERTRALIN                          /01011401/ [Concomitant]
     Dosage: 25 mg, UNK
  9. MACROBID                           /00024401/ [Concomitant]
     Dosage: 100 mg, UNK
  10. PYRIDIUM [Concomitant]
     Dosage: 100 mg, UNK
  11. ALPRAZOLAM [Concomitant]
     Dosage: 0.5 mg, UNK
  12. OMEPRAZOL                          /00661201/ [Concomitant]
     Dosage: 20 mg, UNK
  13. ADVIL                              /00044201/ [Concomitant]
     Dosage: 200 mg, UNK
  14. FIORICET [Concomitant]
     Dosage: UNK
  15. FLOVENT [Concomitant]
     Dosage: 110 mug, UNK
  16. ADVAIR HFA [Concomitant]
     Dosage: 115/21
  17. BENICAR [Concomitant]
     Dosage: 5 mg, UNK

REACTIONS (1)
  - Drug ineffective [Unknown]
